FAERS Safety Report 8052711-7 (Version None)
Quarter: 2012Q1

REPORT INFORMATION
  Report Type: 
  Country: None (occurrence: None)
  Receive Date: 20120118
  Receipt Date: 20120118
  Transmission Date: 20120608
  Serious: Yes (Life-Threatening, Hospitalization)
  Sender: FDA-Public Use
  Company Number: None

PATIENT
  Age: 57 Year
  Sex: Male
  Weight: 81 kg

DRUGS (3)
  1. PEGINTERFERON ALFA-2A [Suspect]
     Indication: HEPATITIS C
     Dosage: 180 MCG
     Route: 058
  2. TELAPREVIR [Concomitant]
     Route: 048
  3. RIBAVIRIN [Concomitant]
     Route: 048

REACTIONS (5)
  - CEREBRAL INFARCTION [None]
  - APHASIA [None]
  - HEMIPARESIS [None]
  - PUPILLARY REFLEX IMPAIRED [None]
  - VIITH NERVE PARALYSIS [None]
